APPROVED DRUG PRODUCT: BROMANATE DM
Active Ingredient: BROMPHENIRAMINE MALEATE; DEXTROMETHORPHAN HYDROBROMIDE; PSEUDOEPHEDRINE HYDROCHLORIDE
Strength: 2MG/5ML;10MG/5ML;30MG/5ML
Dosage Form/Route: SYRUP;ORAL
Application: A088722 | Product #001
Applicant: ALPHARMA US PHARMACEUTICALS DIVISION
Approved: Mar 7, 1985 | RLD: No | RS: No | Type: DISCN